FAERS Safety Report 9639391 (Version 1)
Quarter: 2013Q4

REPORT INFORMATION
  Report Type: Spontaneous
  Country: US (occurrence: US)
  Receive Date: 20131022
  Receipt Date: 20131022
  Transmission Date: 20140711
  Serious: Yes (Hospitalization)
  Sender: FDA-Public Use
  Company Number: US-RB-059646-13

PATIENT
  Age: 30 Year
  Sex: Male

DRUGS (4)
  1. SUBOXONE FILM [Suspect]
     Dosage: SUBOXONE FILM; DOSING DETAILS UNKNOWN
     Route: 060
     Dates: start: 2012
  2. SUBOXONE FILM [Suspect]
     Indication: DRUG DEPENDENCE
     Dosage: SUBOXONE FILM
     Route: 060
  3. SUBOXONE FILM [Suspect]
     Indication: ABDOMINAL PAIN
     Dosage: SUBOXONE FILM
     Route: 060
     Dates: end: 201306
  4. SUBOXONE FILM [Suspect]
     Dosage: SUBOXONE FILM; 2 MG ON TWO OCCASIONS
     Route: 060
     Dates: start: 201310, end: 20131009

REACTIONS (5)
  - Wrong technique in drug usage process [Recovered/Resolved]
  - Abdominal pain [Recovered/Resolved]
  - Substance abuse [Recovered/Resolved]
  - Appendicitis perforated [Recovered/Resolved]
  - Procedural pain [Not Recovered/Not Resolved]
